FAERS Safety Report 23105208 (Version 1)
Quarter: 2023Q4

REPORT INFORMATION
  Report Type: Spontaneous
  Country: IT (occurrence: IT)
  Receive Date: 20231025
  Receipt Date: 20231025
  Transmission Date: 20240110
  Serious: Yes (Other)
  Sender: FDA-Public Use
  Company Number: None

PATIENT
  Age: 70 Year
  Sex: Female
  Weight: 68 kg

DRUGS (4)
  1. TRIAMCINOLONE ACETONIDE [Suspect]
     Active Substance: TRIAMCINOLONE ACETONIDE
     Indication: Tendon disorder
     Route: 035
     Dates: start: 20231004, end: 20231004
  2. LIDOCAINE [Suspect]
     Active Substance: LIDOCAINE
     Indication: Tendon disorder
     Route: 035
     Dates: start: 20231004, end: 20231004
  3. PREDNISONE [Suspect]
     Active Substance: PREDNISONE
     Indication: Tendon disorder
     Route: 048
     Dates: start: 20230928, end: 20231004
  4. FLECAINIDE ACETATE [Concomitant]
     Active Substance: FLECAINIDE ACETATE
     Indication: Atrial fibrillation
     Route: 048
     Dates: start: 202202

REACTIONS (3)
  - Neck pain [Recovered/Resolved]
  - Erythema [Recovered/Resolved]
  - Hypertensive crisis [Recovered/Resolved]

NARRATIVE: CASE EVENT DATE: 20231004
